FAERS Safety Report 8888421 (Version 1)
Quarter: 2012Q4

REPORT INFORMATION
  Report Type: 
  Country: FR (occurrence: FR)
  Receive Date: 20121106
  Receipt Date: 20121106
  Transmission Date: 20130627
  Serious: Yes (Hospitalization)
  Sender: FDA-Public Use
  Company Number: PHHY2012FR101170

PATIENT
  Age: 70 Year
  Sex: Male

DRUGS (3)
  1. OSLIF [Suspect]
     Indication: CHRONIC OBSTRUCTIVE PULMONARY DISEASE
     Dosage: 150 ug, QD
     Dates: start: 20120914
  2. CORDARONE [Concomitant]
     Indication: CARDIAC FIBRILLATION
  3. SERETIDE [Concomitant]
     Indication: CHRONIC OBSTRUCTIVE PULMONARY DISEASE

REACTIONS (1)
  - Ventricular fibrillation [Recovered/Resolved]
